FAERS Safety Report 9822521 (Version 1)
Quarter: 2014Q1

REPORT INFORMATION
  Report Type: Report from Study
  Country: US (occurrence: US)
  Receive Date: 20140116
  Receipt Date: 20140116
  Transmission Date: 20141002
  Serious: Yes (Other)
  Sender: FDA-Public Use
  Company Number: US-ABBVIE-14P-163-1188249-00

PATIENT
  Age: 65 Year
  Sex: Female

DRUGS (12)
  1. HUMIRA [Suspect]
     Indication: RHEUMATOID ARTHRITIS
  2. ASA [Concomitant]
     Indication: PRODUCT USED FOR UNKNOWN INDICATION
  3. CELEXA [Concomitant]
     Indication: DEPRESSION
  4. XANAX [Concomitant]
     Indication: DEPRESSION
     Dosage: AS NEEDED
  5. METHOTREXATE [Concomitant]
     Indication: RHEUMATOID ARTHRITIS
  6. GABAPENTIN [Concomitant]
     Indication: FIBROMYALGIA
  7. SULFASALAZINE [Concomitant]
     Indication: RHEUMATOID ARTHRITIS
     Dosage: AS NEEDED
  8. CARDIZEM [Concomitant]
     Indication: HYPERTENSION
  9. HCTZ [Concomitant]
     Indication: HYPERTENSION
  10. ZYRTEC [Concomitant]
     Indication: HYPERSENSITIVITY
  11. LIDODERM [Concomitant]
     Indication: PAIN
     Dosage: PATCH, TO ARMS OR LEGS, AS NEEDED
     Route: 061
  12. HYDROCODONE [Concomitant]
     Indication: PAIN
     Dosage: AS NEEDED

REACTIONS (12)
  - Transient ischaemic attack [Unknown]
  - Headache [Unknown]
  - Nausea [Unknown]
  - Presyncope [Unknown]
  - Skin burning sensation [Unknown]
  - Cold sweat [Unknown]
  - Somnolence [Unknown]
  - Asthenia [Unknown]
  - Arthralgia [Not Recovered/Not Resolved]
  - Mass [Not Recovered/Not Resolved]
  - Joint swelling [Recovering/Resolving]
  - Joint range of motion decreased [Not Recovered/Not Resolved]
